FAERS Safety Report 5657346-9 (Version None)
Quarter: 2008Q1

REPORT INFORMATION
  Report Type: 
  Country: None (occurrence: None)
  Receive Date: 20080310
  Receipt Date: 20080225
  Transmission Date: 20080703
  Serious: Yes (Hospitalization, Other)
  Sender: FDA-Public Use
  Company Number: PHBS2008BR00470

PATIENT
  Age: 23 Year
  Sex: Male
  Weight: 74 kg

DRUGS (2)
  1. LEPONEX [Suspect]
     Indication: SCHIZOPHRENIA
     Dosage: 300 MG/D
     Route: 048
  2. LEPONEX [Suspect]
     Dosage: UNK, BID
     Route: 048
     Dates: start: 20071201

REACTIONS (7)
  - AGGRESSION [None]
  - AGITATION [None]
  - FEELING ABNORMAL [None]
  - HALLUCINATION, AUDITORY [None]
  - PLATELET COUNT DECREASED [None]
  - RESTLESSNESS [None]
  - SOCIAL AVOIDANT BEHAVIOUR [None]
